FAERS Safety Report 20650064 (Version 1)
Quarter: 2022Q1

REPORT INFORMATION
  Report Type: Spontaneous
  Country: PL (occurrence: PL)
  Receive Date: 20220329
  Receipt Date: 20220329
  Transmission Date: 20220423
  Serious: Yes (Death)
  Sender: FDA-Public Use
  Company Number: PL-MLMSERVICE-20220317-3413547-1

PATIENT
  Age: 89 Year
  Sex: Male

DRUGS (7)
  1. DEXAMETHASONE [Suspect]
     Active Substance: DEXAMETHASONE
     Indication: COVID-19 pneumonia
     Route: 065
  2. TOCILIZUMAB [Suspect]
     Active Substance: TOCILIZUMAB
     Indication: COVID-19 pneumonia
     Dosage: SINGLE DOSE OF 600 MG
     Route: 065
  3. ENOXAPARIN [Concomitant]
     Active Substance: ENOXAPARIN
     Indication: COVID-19 pneumonia
     Dosage: 1 MG PER KG BODY WEIGHT DAILY
  4. OXYGEN [Concomitant]
     Active Substance: OXYGEN
     Indication: COVID-19 pneumonia
     Dosage: VIA A MASK WITH AN OXYGEN RESERVOIR WITH A FLOW OF 6 L/MIN
     Route: 055
  5. LEVOFLOXACIN [Concomitant]
     Active Substance: LEVOFLOXACIN
     Indication: Evidence based treatment
  6. AMOXICILLIN [Concomitant]
     Active Substance: AMOXICILLIN
     Indication: Evidence based treatment
  7. CLAVULANIC ACID [Concomitant]
     Active Substance: CLAVULANIC ACID
     Indication: Evidence based treatment

REACTIONS (3)
  - Pneumonia pneumococcal [Fatal]
  - Pneumococcal sepsis [Fatal]
  - Meningitis pneumococcal [Fatal]
